FAERS Safety Report 8311515-8 (Version None)
Quarter: 2012Q2

REPORT INFORMATION
  Report Type: 
  Country: None (occurrence: None)
  Receive Date: 20120425
  Receipt Date: 20120417
  Transmission Date: 20120825
  Serious: Yes (Other)
  Sender: FDA-Public Use
  Company Number: US-BAYER-2012-016161

PATIENT
  Age: 25 Year
  Sex: Female
  Weight: 78 kg

DRUGS (5)
  1. ONDANSETRON [Concomitant]
     Dosage: 4 MG, TID
     Route: 048
     Dates: start: 20100220
  2. PROPOXYPHENE-N 100 WITH APAP [Concomitant]
     Dosage: UNK UNK, PRN
     Route: 048
     Dates: start: 20100220
  3. OMEPRAZOLE [Concomitant]
     Dosage: 20 MG, BID
     Route: 048
     Dates: start: 20100220
  4. FLAGYL [Concomitant]
     Indication: VAGINITIS BACTERIAL
  5. YAZ [Suspect]
     Indication: CONTRACEPTION
     Dosage: UNK
     Dates: start: 20070101, end: 20100101

REACTIONS (6)
  - URINARY TRACT INFECTION [None]
  - PAIN [None]
  - CHOLECYSTECTOMY [None]
  - MENTAL DISORDER [None]
  - INJURY [None]
  - BILIARY DYSKINESIA [None]
